FAERS Safety Report 21897935 (Version 1)
Quarter: 2023Q1

REPORT INFORMATION
  Report Type: Spontaneous
  Country: US (occurrence: US)
  Receive Date: 20230123
  Receipt Date: 20230123
  Transmission Date: 20230417
  Serious: Yes (Other)
  Sender: FDA-Public Use
  Company Number: US-SA-SAC20230123000210

PATIENT
  Age: 27 Year
  Sex: Male

DRUGS (2)
  1. ELOCTATE [Suspect]
     Active Substance: EFMOROCTOCOG ALFA
     Indication: Factor VIII deficiency
     Dosage: 4000 UNITS (3600-4400), BID, AS NEEDED
     Route: 042
     Dates: start: 202212
  2. HEMLIBRA [Concomitant]
     Active Substance: EMICIZUMAB-KXWH
     Dosage: 360 MG, TOTAL

REACTIONS (2)
  - Haemorrhage [Unknown]
  - Joint injury [Unknown]
